FAERS Safety Report 23944290 (Version 1)
Quarter: 2024Q2

REPORT INFORMATION
  Report Type: Spontaneous
  Country: JP (occurrence: JP)
  Receive Date: 20240606
  Receipt Date: 20240606
  Transmission Date: 20240716
  Serious: Yes (Death, Other)
  Sender: FDA-Public Use
  Company Number: JP-TAKEDA-2024TJP008095

PATIENT
  Age: 8 Decade
  Sex: Male

DRUGS (1)
  1. VECTIBIX [Suspect]
     Active Substance: PANITUMUMAB
     Indication: Colon cancer recurrent
     Dosage: 6 MILLIGRAM/KILOGRAM, Q2WK (6 MILLIGRAM/KILOGRAM, Q2WEEKS)
     Route: 041
     Dates: start: 20231207

REACTIONS (1)
  - Colon cancer recurrent [Fatal]

NARRATIVE: CASE EVENT DATE: 20240307
